FAERS Safety Report 6539132-0 (Version None)
Quarter: 2010Q1

REPORT INFORMATION
  Report Type: 
  Country: None (occurrence: None)
  Receive Date: 20100112
  Receipt Date: 20091229
  Transmission Date: 20100710
  Serious: Yes (Other)
  Sender: FDA-Public Use
  Company Number: 003592

PATIENT
  Sex: Female

DRUGS (2)
  1. KEPPRA [Suspect]
     Indication: BRAIN NEOPLASM
     Dosage: (3000 MG QD), (2000 MG QD)
  2. DEXAMETHASONE [Concomitant]

REACTIONS (1)
  - THROMBOCYTOPENIA [None]
